FAERS Safety Report 5203556-4 (Version None)
Quarter: 2007Q1

REPORT INFORMATION
  Report Type: 
  Country: None (occurrence: None)
  Receive Date: 20070110
  Receipt Date: 20070108
  Transmission Date: 20070707
  Serious: Yes (Other)
  Sender: FDA-Public Use
  Company Number: 2006PV024726

PATIENT
  Sex: Female

DRUGS (2)
  1. AVANDIA [Suspect]
     Indication: DRUG USE FOR UNKNOWN INDICATION
     Route: 048
     Dates: start: 20051001, end: 20060401
  2. METFORMIN HCL [Concomitant]
     Dates: start: 20030501

REACTIONS (3)
  - HALO VISION [None]
  - RETINAL DISORDER [None]
  - VISUAL ACUITY REDUCED [None]
